FAERS Safety Report 22258792 (Version 2)
Quarter: 2023Q2

REPORT INFORMATION
  Report Type: Report from Study
  Country: CA (occurrence: CA)
  Receive Date: 20230427
  Receipt Date: 20230522
  Transmission Date: 20230722
  Serious: Yes (Hospitalization, Other)
  Sender: FDA-Public Use
  Company Number: CA-OTSUKA-2022_040440

PATIENT
  Sex: Female

DRUGS (4)
  1. TOLVAPTAN [Suspect]
     Active Substance: TOLVAPTAN
     Indication: Congenital cystic kidney disease
     Dosage: 45 MG, QD (IN AM)
     Route: 048
     Dates: start: 20220806, end: 20230412
  2. TOLVAPTAN [Suspect]
     Active Substance: TOLVAPTAN
     Dosage: 15 MG, QD (IN PM)
     Route: 048
     Dates: start: 20220806, end: 20230412
  3. BRILINTA [Suspect]
     Active Substance: TICAGRELOR
     Indication: Product used for unknown indication
     Dosage: UNK
     Route: 065
  4. AMLODIPINE [Concomitant]
     Active Substance: AMLODIPINE BESYLATE
     Indication: Blood pressure measurement
     Dosage: 5 MG
     Route: 065

REACTIONS (8)
  - Syncope [Unknown]
  - Muscle spasms [Unknown]
  - Abdominal distension [Recovered/Resolved]
  - Polydipsia [Unknown]
  - Fatigue [Unknown]
  - Pollakiuria [Unknown]
  - Dizziness [Unknown]
  - Thirst [Unknown]
